FAERS Safety Report 6237045 (Version 1)
Quarter: 2020Q3

REPORT INFORMATION
  Report Type: Report from Study
  Country: BR (occurrence: BR)
  Receive Date: 20070213
  Receipt Date: 20070213
  Transmission Date: 20201105
  Serious: Yes (Death)
  Sender: FDA-Public Use
  Company Number: HQWYE396205DEC06

PATIENT
  Age: 69 Year
  Sex: Female
  Weight: 65.7 kg

DRUGS (4)
  1. RALOXIFENE HYDROCHLORIDE. [Suspect]
     Active Substance: RALOXIFENE HYDROCHLORIDE
     Indication: OSTEOPOROSIS
     Route: 048
     Dates: start: 20030911, end: 20061130
  2. BROMAZEPAM [Concomitant]
     Active Substance: BROMAZEPAM
     Indication: INSOMNIA
     Dosage: 3 MG DAILY DOSE; FREQUENCY SPORADIC
     Route: 048
     Dates: start: 20030101, end: 20061202
  3. DICLOFENAC SODIUM. [Concomitant]
     Active Substance: DICLOFENAC SODIUM
     Indication: PAIN
     Dosage: 50 MG DAILY DOSE; FREQUENCY SPORADIC
     Route: 048
     Dates: start: 20060123, end: 20061202
  4. DICLOFENAC POTASSIUM. [Concomitant]
     Active Substance: DICLOFENAC POTASSIUM
     Indication: PAIN
     Dosage: 50 MG DAILY DOSE; FREQUENCY SPORADIC
     Route: 048
     Dates: start: 20060123, end: 20061202

REACTIONS (3)
  - Hypercholesterolaemia [Fatal]
  - Acute myocardial infarction [Fatal]
  - Cardiac failure [Fatal]

NARRATIVE: CASE EVENT DATE: 20061202
